FAERS Safety Report 16158794 (Version 2)
Quarter: 2019Q2

REPORT INFORMATION
  Report Type: Spontaneous
  Country: GB (occurrence: GB)
  Receive Date: 20190404
  Receipt Date: 20190607
  Transmission Date: 20190711
  Serious: Yes (Other)
  Sender: FDA-Public Use
  Company Number: GB-OTSUKA-2019_008055

PATIENT
  Age: 26 Year
  Sex: Male

DRUGS (6)
  1. ARIPIPRAZOLE. [Suspect]
     Active Substance: ARIPIPRAZOLE
     Indication: HYPERPROLACTINAEMIA
     Dosage: 15 MG/D
     Route: 065
  2. CLOZAPINE. [Concomitant]
     Active Substance: CLOZAPINE
     Dosage: 20 MG, BID
     Route: 048
  3. ARIPIPRAZOLE. [Suspect]
     Active Substance: ARIPIPRAZOLE
     Indication: SCHIZOPHRENIA
  4. OLANZAPINE. [Suspect]
     Active Substance: OLANZAPINE
     Dosage: 20 MG/D
     Route: 065
  5. OLANZAPINE. [Suspect]
     Active Substance: OLANZAPINE
     Indication: SCHIZOPHRENIA
     Dosage: UNK
     Route: 065
  6. CLOZAPINE. [Concomitant]
     Active Substance: CLOZAPINE
     Indication: PRODUCT USED FOR UNKNOWN INDICATION
     Dosage: 20 MG, QD
     Route: 048

REACTIONS (2)
  - Product use in unapproved indication [Unknown]
  - Abnormal loss of weight [Not Recovered/Not Resolved]
